FAERS Safety Report 19889282 (Version 1)
Quarter: 2021Q3

REPORT INFORMATION
  Report Type: Report from Study
  Country: US (occurrence: US)
  Receive Date: 20210927
  Receipt Date: 20210927
  Transmission Date: 20211014
  Serious: Yes (Hospitalization)
  Sender: FDA-Public Use
  Company Number: US-BAYER-2021A217075

PATIENT
  Age: 13 Year
  Sex: Female
  Weight: 59.86 kg

DRUGS (1)
  1. ADEMPAS [Suspect]
     Active Substance: RIOCIGUAT
     Indication: PULMONARY ARTERIAL HYPERTENSION
     Dosage: 0.5 MG, TID
     Route: 048
     Dates: start: 20210504

REACTIONS (2)
  - Cardiac therapeutic procedure [None]
  - Off label use [None]

NARRATIVE: CASE EVENT DATE: 20210907
